FAERS Safety Report 7399045-1 (Version None)
Quarter: 2011Q1

REPORT INFORMATION
  Report Type: 
  Country: None (occurrence: None)
  Receive Date: 20110301
  Receipt Date: 20100621
  Transmission Date: 20110831
  Serious: Yes (Other)
  Sender: FDA-Public Use
  Company Number: US-JNJFOC-20100600636

PATIENT
  Sex: Female

DRUGS (1)
  1. CHILDREN'S MOTRIN [Suspect]
     Indication: MIGRAINE

REACTIONS (7)
  - PRODUCT QUALITY ISSUE [None]
  - CONTUSION [None]
  - NECK PAIN [None]
  - HYPERSENSITIVITY [None]
  - HAEMATEMESIS [None]
  - ABDOMINAL PAIN UPPER [None]
  - ARTHRALGIA [None]
